FAERS Safety Report 25402646 (Version 1)
Quarter: 2025Q2

REPORT INFORMATION
  Report Type: Report from Study
  Country: US (occurrence: US)
  Receive Date: 20250605
  Receipt Date: 20250605
  Transmission Date: 20250716
  Serious: Yes (Other)
  Sender: PFIZER
  Company Number: US-PFIZER INC-202500049446

PATIENT
  Age: 75 Year
  Sex: Female

DRUGS (8)
  1. IBRANCE [Suspect]
     Active Substance: PALBOCICLIB
     Route: 048
  2. IBRANCE [Suspect]
     Active Substance: PALBOCICLIB
     Dates: end: 20250425
  3. IBRANCE [Suspect]
     Active Substance: PALBOCICLIB
  4. IBRANCE [Suspect]
     Active Substance: PALBOCICLIB
     Dosage: TAKE 1 TABLET (100MG) BY MOUTH DAILY
     Route: 048
  5. ITOVEBI [Suspect]
     Active Substance: INAVOLISIB
  6. METFORMIN [Concomitant]
     Active Substance: METFORMIN HYDROCHLORIDE
  7. JARDIANCE [Concomitant]
     Active Substance: EMPAGLIFLOZIN
  8. COREG [Concomitant]
     Active Substance: CARVEDILOL

REACTIONS (31)
  - Hypotension [Unknown]
  - Hyperglycaemia [Unknown]
  - Nausea [Unknown]
  - Hypoaesthesia oral [Unknown]
  - Oral discomfort [Unknown]
  - Joint swelling [Recovering/Resolving]
  - Contusion [Unknown]
  - Parosmia [Unknown]
  - Dysgeusia [Unknown]
  - Epistaxis [Unknown]
  - Fatigue [Unknown]
  - Peripheral swelling [Unknown]
  - Urinary tract infection [Unknown]
  - Oral pain [Unknown]
  - Decreased appetite [Unknown]
  - Constipation [Unknown]
  - Malaise [Unknown]
  - Illness [Unknown]
  - Abdominal distension [Unknown]
  - Dyspepsia [Unknown]
  - Feeding disorder [Not Recovered/Not Resolved]
  - White blood cell count decreased [Unknown]
  - Red blood cell count decreased [Unknown]
  - Haemoglobin decreased [Unknown]
  - Visual impairment [Unknown]
  - Dry skin [Unknown]
  - Nasal dryness [Unknown]
  - Dry mouth [Unknown]
  - Tongue dry [Unknown]
  - Taste disorder [Unknown]
  - Middle insomnia [Unknown]
